FAERS Safety Report 10017274 (Version 2)
Quarter: 2014Q1

REPORT INFORMATION
  Report Type: Report from Study
  Country: US (occurrence: US)
  Receive Date: 20140318
  Receipt Date: 20140318
  Transmission Date: 20141002
  Serious: Yes (Hospitalization)
  Sender: FDA-Public Use
  Company Number: US-ALEXION PHARMACEUTICALS INC.-A200901326

PATIENT
  Sex: 0

DRUGS (2)
  1. SOLIRIS [Suspect]
     Indication: PAROXYSMAL NOCTURNAL HAEMOGLOBINURIA
     Dosage: 600 MG, X 4 DOSES
     Route: 042
     Dates: start: 2007, end: 2007
  2. SOLIRIS [Suspect]
     Indication: APLASTIC ANAEMIA

REACTIONS (1)
  - Bone marrow transplant [Recovered/Resolved]
